FAERS Safety Report 10963526 (Version 3)
Quarter: 2015Q2

REPORT INFORMATION
  Report Type: Spontaneous
  Country: JP (occurrence: None)
  Receive Date: 20150326
  Receipt Date: 20150420
  Transmission Date: 20150821
  Serious: Yes (Hospitalization, Disabling)
  Sender: FDA-Public Use
  Company Number: SP09226

PATIENT
  Age: 81 Year
  Sex: Female

DRUGS (8)
  1. BROTIZOLAM [Concomitant]
     Active Substance: BROTIZOLAM
  2. DEPROMEL [Concomitant]
     Active Substance: FLUVOXAMINE
  3. SENNOSIDE A+B [Concomitant]
     Active Substance: SENNOSIDES A AND B
  4. LAXOBERON [Concomitant]
     Active Substance: SODIUM PICOSULFATE
  5. GASCON [Concomitant]
     Active Substance: DIMETHICONE
  6. MYSLEE [Concomitant]
     Active Substance: ZOLPIDEM TARTRATE
  7. DEPAS [Concomitant]
     Active Substance: ETIZOLAM
  8. MOVIPREP [Suspect]
     Active Substance: ASCORBIC ACID\POLYETHYLENE GLYCOL 3350\POTASSIUM CHLORIDE\SODIUM ASCORBATE\SODIUM CHLORIDE\SODIUM SULFATE
     Indication: BOWEL PREPARATION
     Route: 048
     Dates: start: 20150316, end: 20150316

REACTIONS (11)
  - Loss of consciousness [None]
  - Blood pressure decreased [None]
  - Vomiting [None]
  - Subarachnoid haemorrhage [None]
  - Hypoglycaemia [None]
  - Fall [None]
  - Contusion [None]
  - Incontinence [None]
  - Eye movement disorder [None]
  - Dehydration [None]
  - Faecal volume increased [None]

NARRATIVE: CASE EVENT DATE: 20150316
